FAERS Safety Report 6152843-4 (Version None)
Quarter: 2009Q2

REPORT INFORMATION
  Report Type: 
  Country: None (occurrence: None)
  Receive Date: 20090413
  Receipt Date: 20090330
  Transmission Date: 20091009
  Serious: Yes (Other)
  Sender: FDA-Public Use
  Company Number: GB-PFIZER INC-2009190638

PATIENT

DRUGS (1)
  1. CHAMPIX [Suspect]
     Dosage: 1 MG, 2X/DAY

REACTIONS (4)
  - CIRCULATORY COLLAPSE [None]
  - DIABETIC COMA [None]
  - POLYURIA [None]
  - WEIGHT DECREASED [None]
